FAERS Safety Report 11800617 (Version 4)
Quarter: 2016Q1

REPORT INFORMATION
  Report Type: Spontaneous
  Country: IT (occurrence: IT)
  Receive Date: 20151204
  Receipt Date: 20160115
  Transmission Date: 20160525
  Serious: Yes (Life-Threatening, Hospitalization)
  Sender: FDA-Public Use
  Company Number: IT-ASTRAZENECA-2015SF20042

PATIENT
  Age: 5201 Day
  Sex: Female
  Weight: 60 kg

DRUGS (2)
  1. EUTIROX (LEVOTHYROXINE) [Suspect]
     Active Substance: LEVOTHYROXINE SODIUM
     Indication: AUTOIMMUNE THYROIDITIS
     Route: 048
     Dates: start: 20151111, end: 20151111
  2. QUETIAPINE [Suspect]
     Active Substance: QUETIAPINE
     Indication: BIPOLAR DISORDER
     Route: 048
     Dates: start: 20151111, end: 20151111

REACTIONS (4)
  - Drug abuse [Unknown]
  - Suicide attempt [Unknown]
  - Sopor [Recovering/Resolving]
  - Dyspnoea [Unknown]

NARRATIVE: CASE EVENT DATE: 20151111
